FAERS Safety Report 10575508 (Version 1)
Quarter: 2014Q4

REPORT INFORMATION
  Report Type: Spontaneous
  Country: US (occurrence: US)
  Receive Date: 20141111
  Receipt Date: 20141111
  Transmission Date: 20150529
  Serious: Yes (Hospitalization)
  Sender: FDA-Public Use
  Company Number: US-TARO-2014TAR00531

PATIENT
  Age: 93 Year
  Sex: Female
  Weight: 60.77 kg

DRUGS (2)
  1. BENADRYL [Concomitant]
     Active Substance: DIPHENHYDRAMINE HYDROCHLORIDE
     Dosage: UNK, AS NEEDED
  2. WARFARIN SODIUM TABLETS USP 1MG [Suspect]
     Active Substance: WARFARIN SODIUM
     Indication: PROPHYLAXIS
     Dosage: 1.5 MG, 1X/DAY
     Route: 048
     Dates: start: 2012

REACTIONS (9)
  - Discomfort [Not Recovered/Not Resolved]
  - Pallor [Not Recovered/Not Resolved]
  - Dysphagia [Not Recovered/Not Resolved]
  - Dry mouth [Not Recovered/Not Resolved]
  - Cough [Recovering/Resolving]
  - Thirst [Not Recovered/Not Resolved]
  - Lip swelling [Not Recovered/Not Resolved]
  - Chapped lips [Not Recovered/Not Resolved]
  - Blood pressure increased [Unknown]

NARRATIVE: CASE EVENT DATE: 201410
